FAERS Safety Report 5155125-2 (Version None)
Quarter: 2006Q4

REPORT INFORMATION
  Report Type: 
  Country: None (occurrence: None)
  Receive Date: 20061121
  Receipt Date: 20061107
  Transmission Date: 20070319
  Serious: Yes (Hospitalization, Other)
  Sender: FDA-Public Use
  Company Number: US-ELI_LILLY_AND_COMPANY-US200611001419

PATIENT
  Age: 78 Year
  Sex: Female

DRUGS (3)
  1. FORTEO [Suspect]
     Indication: OSTEOPOROSIS
     Dates: start: 20060701, end: 20061001
  2. ACE INHIBITOR NOS [Concomitant]
     Indication: HYPERTENSION
  3. ZOCOR [Concomitant]
     Indication: HYPERLIPIDAEMIA

REACTIONS (9)
  - CONFUSIONAL STATE [None]
  - DECREASED APPETITE [None]
  - DISSOCIATION [None]
  - FATIGUE [None]
  - FEELING ABNORMAL [None]
  - GAIT DISTURBANCE [None]
  - THIRST [None]
  - TRANSIENT ISCHAEMIC ATTACK [None]
  - WEIGHT DECREASED [None]
